FAERS Safety Report 8356331-6 (Version None)
Quarter: 2012Q2

REPORT INFORMATION
  Report Type: 
  Country: None (occurrence: None)
  Receive Date: 20120514
  Receipt Date: 20120504
  Transmission Date: 20120825
  Serious: Yes (Other)
  Sender: FDA-Public Use
  Company Number: US-JNJFOC-20120506934

PATIENT
  Sex: Male

DRUGS (4)
  1. LIPITOR [Suspect]
     Indication: BLOOD CHOLESTEROL
     Dates: start: 20120326, end: 20120503
  2. XARELTO [Suspect]
     Indication: ATRIAL FIBRILLATION
     Route: 048
     Dates: start: 20120326
  3. METOPROLOL TARTRATE [Suspect]
     Indication: PRODUCT USED FOR UNKNOWN INDICATION
     Route: 048
  4. METOPROLOL TARTRATE [Suspect]
     Route: 048
     Dates: start: 20120326, end: 20120101

REACTIONS (6)
  - HAEMORRHAGE [None]
  - ERYTHEMA [None]
  - BURNING SENSATION [None]
  - OEDEMA PERIPHERAL [None]
  - MOBILITY DECREASED [None]
  - BLOOD BLISTER [None]
